FAERS Safety Report 19690808 (Version 1)
Quarter: 2021Q3

REPORT INFORMATION
  Report Type: Spontaneous
  Country: US (occurrence: US)
  Receive Date: 20210812
  Receipt Date: 20210812
  Transmission Date: 20211014
  Serious: No
  Sender: FDA-Public Use
  Company Number: None

PATIENT
  Age: 56 Year
  Sex: Female
  Weight: 90 kg

DRUGS (8)
  1. FISH OIL [Concomitant]
     Active Substance: FISH OIL
  2. VITAMIN C [Concomitant]
     Active Substance: ASCORBIC ACID
  3. MEDROXYPROGESTERONE [Suspect]
     Active Substance: MEDROXYPROGESTERONE
     Indication: ABNORMAL UTERINE BLEEDING
     Dosage: ?          QUANTITY:1 TABLET(S);?
     Route: 048
     Dates: start: 20210802, end: 20210811
  4. MAGNESIUM [Concomitant]
     Active Substance: MAGNESIUM
  5. VITAMIN D3 [Concomitant]
     Active Substance: CHOLECALCIFEROL
  6. VITAMIN K2 [Concomitant]
     Active Substance: MENAQUINONE 6
  7. MEDROXYPROGESTERONE [Suspect]
     Active Substance: MEDROXYPROGESTERONE
     Indication: MENOPAUSAL SYMPTOMS
     Dosage: ?          QUANTITY:1 TABLET(S);?
     Route: 048
     Dates: start: 20210802, end: 20210811
  8. ALBUTEROL SULFATE. [Concomitant]
     Active Substance: ALBUTEROL SULFATE

REACTIONS (3)
  - Asthma [None]
  - Wheezing [None]
  - Exercise tolerance decreased [None]

NARRATIVE: CASE EVENT DATE: 20210809
